FAERS Safety Report 9141202 (Version 2)
Quarter: 2013Q2

REPORT INFORMATION
  Report Type: Spontaneous
  Country: US (occurrence: US)
  Receive Date: 20130305
  Receipt Date: 20130404
  Transmission Date: 20140414
  Serious: Yes (Hospitalization)
  Sender: FDA-Public Use
  Company Number: US-AMGEN-USASP2013007882

PATIENT
  Age: 76 Year
  Sex: Female
  Weight: 58.5 kg

DRUGS (1)
  1. ENBREL [Suspect]
     Indication: RHEUMATOID ARTHRITIS
     Dosage: 50 MG, QWK
     Route: 058
     Dates: start: 20121119, end: 20130117

REACTIONS (4)
  - Staphylococcal abscess [Recovering/Resolving]
  - Arthritis bacterial [Recovering/Resolving]
  - Skin ulcer [Not Recovered/Not Resolved]
  - Peripheral nerve operation [Recovered/Resolved]
